FAERS Safety Report 6250264-7 (Version None)
Quarter: 2009Q2

REPORT INFORMATION
  Report Type: 
  Country: None (occurrence: None)
  Receive Date: 20090626
  Receipt Date: 20090626
  Transmission Date: 20091009
  Serious: Yes (Other)
  Sender: FDA-Public Use
  Company Number: None

PATIENT
  Sex: Male
  Weight: 90 kg

DRUGS (2)
  1. ZICAM COLD GEL SWABS [Suspect]
     Indication: NASOPHARYNGITIS
     Dosage: AS RECOMMENDED AS RECOMMENDED NASAL PAST 5 YEARS
     Route: 045
  2. ZICAM COLD GEL SWABS [Suspect]
     Indication: SINUS DISORDER
     Dosage: AS RECOMMENDED AS RECOMMENDED NASAL PAST 5 YEARS
     Route: 045

REACTIONS (5)
  - BURNING SENSATION [None]
  - FEELING ABNORMAL [None]
  - HYPOAESTHESIA [None]
  - HYPOSMIA [None]
  - MALAISE [None]
